FAERS Safety Report 6816882-X (Version None)
Quarter: 2010Q3

REPORT INFORMATION
  Report Type: 
  Country: None (occurrence: None)
  Receive Date: 20100706
  Receipt Date: 20100621
  Transmission Date: 20110219
  Serious: Yes (Hospitalization, Disabling, Other)
  Sender: FDA-Public Use
  Company Number: AU-ASTRAZENECA-2010SE22566

PATIENT
  Age: 717 Month
  Sex: Female
  Weight: 84 kg

DRUGS (7)
  1. CRESTOR [Interacting]
     Indication: HYPERLIPIDAEMIA
     Route: 048
     Dates: start: 20090407, end: 20090503
  2. ACTOS [Interacting]
     Indication: TYPE 2 DIABETES MELLITUS
     Dates: start: 20081219, end: 20090530
  3. LIPITOR [Suspect]
  4. METHOTREXATE [Concomitant]
     Indication: ARTHRITIS
     Dates: end: 20090101
  5. METFORMIN HCL [Concomitant]
     Indication: TYPE 2 DIABETES MELLITUS
     Route: 048
     Dates: start: 19990101
  6. KARVEZIDE [Concomitant]
     Indication: HYPERTENSION
     Dosage: 300/12.5 G
     Route: 048
     Dates: start: 20020101
  7. SOMAC [Concomitant]
     Indication: GASTROOESOPHAGEAL REFLUX DISEASE
     Route: 048
     Dates: start: 20070101

REACTIONS (3)
  - BLOOD CREATINE PHOSPHOKINASE INCREASED [None]
  - DRUG INTERACTION [None]
  - MYOSITIS [None]
